FAERS Safety Report 6892176-1 (Version None)
Quarter: 2010Q3

REPORT INFORMATION
  Report Type: 
  Country: None (occurrence: None)
  Receive Date: 20100731
  Receipt Date: 20080220
  Transmission Date: 20110219
  Serious: No
  Sender: FDA-Public Use
  Company Number: US-PFIZER INC-2008016698

PATIENT
  Sex: Male
  Weight: 99.09 kg

DRUGS (7)
  1. CAVERJECT [Suspect]
     Indication: ERECTILE DYSFUNCTION
  2. VIAGRA [Suspect]
     Indication: ERECTILE DYSFUNCTION
  3. CIALIS [Suspect]
  4. LEVITRA [Suspect]
  5. SITAGLIPTIN [Concomitant]
  6. LISINOPRIL [Concomitant]
  7. VYTORIN [Concomitant]

REACTIONS (5)
  - DRUG INEFFECTIVE [None]
  - ERECTION INCREASED [None]
  - HEADACHE [None]
  - MALAISE [None]
  - NASAL CONGESTION [None]
